FAERS Safety Report 4333882-2 (Version None)
Quarter: 2004Q2

REPORT INFORMATION
  Report Type: 
  Country: None (occurrence: None)
  Receive Date: 20040402
  Receipt Date: 20040402
  Transmission Date: 20050107
  Serious: Yes (Life-Threatening, Hospitalization)
  Sender: FDA-Public Use
  Company Number: None

PATIENT
  Age: 70 Year
  Sex: Male
  Weight: 65.318 kg

DRUGS (24)
  1. ESTRAMUSTINE PHOSPHATE 140 MG PHARMACIA [Suspect]
     Indication: PROSTATE CANCER
     Dosage: 140 MG TID ORAL
     Route: 048
     Dates: start: 20030916, end: 20031225
  2. PACLITAXEL [Suspect]
     Indication: PROSTATE CANCER
     Dosage: 90 MG/M2 QWKX 3 /CYCL IV
     Route: 042
     Dates: start: 20030917, end: 20031224
  3. CELEBREX [Concomitant]
  4. TAXOL [Concomitant]
  5. EMCYT [Concomitant]
  6. DITROPAN [Concomitant]
  7. ELMIRON [Concomitant]
  8. HYTRIN [Concomitant]
  9. LIPITOR [Concomitant]
  10. ALTACE [Concomitant]
  11. ATENOLOL [Concomitant]
  12. NEXIUM [Concomitant]
  13. FLEXERIL [Concomitant]
  14. FOSAMAX [Concomitant]
  15. XANAX [Concomitant]
  16. FLEXERIL [Concomitant]
  17. FOSAMAX [Concomitant]
  18. XANAX [Concomitant]
  19. LUPRON [Concomitant]
  20. MULTIVITAMIN [Concomitant]
  21. OSCAL [Concomitant]
  22. VITAMIN D [Concomitant]
  23. ARTHX-GLUCOSAMINE 500 MG-/CONDROITIN [Concomitant]
  24. SUPER B WITH VITAMIN C [Concomitant]

REACTIONS (13)
  - ANAEMIA [None]
  - BACK PAIN [None]
  - BLADDER SPASM [None]
  - DIALYSIS [None]
  - DYSPNOEA EXERTIONAL [None]
  - FATIGUE [None]
  - HAEMATURIA [None]
  - HYPERKALAEMIA [None]
  - MICTURITION FREQUENCY DECREASED [None]
  - OBSTRUCTIVE UROPATHY [None]
  - OEDEMA PERIPHERAL [None]
  - RENAL FAILURE ACUTE [None]
  - URINE OUTPUT DECREASED [None]
